FAERS Safety Report 6546586-2 (Version None)
Quarter: 2010Q1

REPORT INFORMATION
  Report Type: 
  Country: None (occurrence: None)
  Receive Date: 20100122
  Receipt Date: 20100115
  Transmission Date: 20100710
  Serious: Yes (Hospitalization, Other)
  Sender: FDA-Public Use
  Company Number: US-BAYER-200942483NA

PATIENT
  Age: 22 Year
  Sex: Female

DRUGS (1)
  1. MIRENA [Suspect]
     Indication: PREGNANCY
     Dosage: CONTINUOUS
     Route: 015
     Dates: start: 20091208, end: 20091210

REACTIONS (1)
  - UTERINE PERFORATION [None]
